FAERS Safety Report 10083230 (Version 1)
Quarter: 2014Q2

REPORT INFORMATION
  Report Type: Spontaneous
  Country: US (occurrence: None)
  Receive Date: 20140416
  Receipt Date: 20140416
  Transmission Date: 20141212
  Serious: Yes (Life-Threatening, Hospitalization)
  Sender: FDA-Public Use
  Company Number: None

PATIENT
  Age: 87 Year
  Sex: Male
  Weight: 56 kg

DRUGS (12)
  1. THROMBIN [Suspect]
     Indication: VASCULAR PSEUDOANEURYSM
     Dosage: PERCUTANEOUS
     Dates: start: 20140409, end: 20140409
  2. ASPIRIN [Concomitant]
  3. COREG [Concomitant]
  4. BENADRYL [Concomitant]
  5. FAMOTIDINE [Concomitant]
  6. HEPARIN [Concomitant]
  7. NOVOLOG SCALE SC ACHS [Concomitant]
  8. SOLU-MEDROL [Concomitant]
  9. PERCOCET [Concomitant]
  10. PROPOFUL [Concomitant]
  11. ZOCOR [Concomitant]
  12. NS [Concomitant]

REACTIONS (1)
  - Anaphylactic reaction [None]
